FAERS Safety Report 9691124 (Version 5)
Quarter: 2014Q1

REPORT INFORMATION
  Report Type: Report from Study
  Country: KR (occurrence: KR)
  Receive Date: 20131115
  Receipt Date: 20140117
  Transmission Date: 20141002
  Serious: Yes (Hospitalization)
  Sender: FDA-Public Use
  Company Number: KR-BRISTOL-MYERS SQUIBB COMPANY-19802446

PATIENT
  Age: 59 Year
  Sex: Female

DRUGS (9)
  1. ARIPIPRAZOLE [Suspect]
     Indication: BIPOLAR I DISORDER
     Dosage: 16AUG-27OCT13 73DYS ?28OCT-4NOV13 8DYS 15MG?5NOV13-ONG 20MG?LAST DOSE:06NOV13:30MG
     Route: 065
     Dates: start: 20130816, end: 20131106
  2. PROPANOLOL HYDROCHLORIDE [Concomitant]
     Dates: start: 20110120
  3. BENZATROPINE [Concomitant]
     Dates: start: 20120829
  4. LORAZEPAM [Concomitant]
     Dates: start: 20130818
  5. ASPIRIN [Concomitant]
     Dates: start: 20130930
  6. BENZYDAMINE HCL [Concomitant]
     Dates: start: 20131014
  7. POLYCARBOPHIL CALCIUM [Concomitant]
     Dates: start: 20131005, end: 20131027
  8. PARACETAMOL [Concomitant]
     Dates: start: 20131014, end: 20131015
  9. PSEUDOEPHEDRINE HCL [Concomitant]
     Dates: start: 20131014, end: 20131014

REACTIONS (1)
  - Bipolar I disorder [Recovered/Resolved]
